FAERS Safety Report 8548560-3 (Version None)
Quarter: 2012Q3

REPORT INFORMATION
  Report Type: 
  Country: None (occurrence: None)
  Receive Date: 20120730
  Receipt Date: 20120718
  Transmission Date: 20120928
  Serious: Yes (Hospitalization)
  Sender: FDA-Public Use
  Company Number: JP-NOVOPROD-355333

PATIENT
  Age: 3 Year
  Sex: Male
  Weight: 12 kg

DRUGS (4)
  1. NORDITROPIN [Suspect]
     Indication: SMALL FOR DATES BABY
     Dosage: 0.4 MG, QD
     Route: 058
     Dates: start: 20110224
  2. WARFARIN SODIUM [Concomitant]
     Indication: THROMBOSIS
     Dosage: 1.1 MG, QD
     Route: 048
     Dates: start: 20100514
  3. LAXOBERON [Concomitant]
     Indication: CONSTIPATION
     Dosage: UNK
     Route: 048
     Dates: start: 20091002
  4. ENALART [Concomitant]
     Indication: CARDIAC FAILURE CHRONIC
     Dosage: 1.1 MG, QD
     Route: 048
     Dates: start: 20091002

REACTIONS (2)
  - OTITIS MEDIA [None]
  - CONDITION AGGRAVATED [None]
